FAERS Safety Report 9238312 (Version 1)
Quarter: 2013Q2

REPORT INFORMATION
  Report Type: Spontaneous
  Country: US (occurrence: None)
  Receive Date: 20130417
  Receipt Date: 20130417
  Transmission Date: 20140414
  Serious: Yes (Death, Life-Threatening, Other)
  Sender: FDA-Public Use
  Company Number: None

PATIENT
  Age: 57 Year
  Sex: Male
  Weight: 107.5 kg

DRUGS (4)
  1. PACLITAXEL [Suspect]
     Indication: TONSIL CANCER METASTATIC
     Dosage: 190MG; Q WEEK 3 OF 4 WEEK; IV DRIP
     Route: 041
     Dates: start: 20130111, end: 20130225
  2. DEXAMETHASONE [Concomitant]
  3. FAMOTIDINE [Concomitant]
  4. DIPHENHYDRAMINE [Concomitant]

REACTIONS (3)
  - Fatigue [None]
  - Acute respiratory failure [None]
  - Interstitial lung disease [None]
